FAERS Safety Report 7340512-4 (Version None)
Quarter: 2011Q1

REPORT INFORMATION
  Report Type: 
  Country: None (occurrence: None)
  Receive Date: 20110218
  Receipt Date: 20101019
  Transmission Date: 20110831
  Serious: Yes (Hospitalization)
  Sender: FDA-Public Use
  Company Number: 20101019CINRY1655

PATIENT
  Age: 39 Year
  Sex: Male

DRUGS (4)
  1. LEXAPRO [Concomitant]
  2. PREDNISONE TAB [Suspect]
     Indication: HEREDITARY ANGIOEDEMA
     Dosage: (30 MG)
     Dates: start: 20100101
  3. PLENDIL [Concomitant]
  4. CINRYZE [Suspect]
     Indication: HEREDITARY ANGIOEDEMA
     Dosage: (1000 UNIT, 3 IN 1 WK)
     Dates: start: 20100928

REACTIONS (6)
  - INAPPROPRIATE SCHEDULE OF DRUG ADMINISTRATION [None]
  - DYSPEPSIA [None]
  - INFUSION RELATED REACTION [None]
  - ANGIOEDEMA [None]
  - HEREDITARY ANGIOEDEMA [None]
  - FLUSHING [None]
